APPROVED DRUG PRODUCT: IPRATROPIUM BROMIDE
Active Ingredient: IPRATROPIUM BROMIDE
Strength: 0.02%
Dosage Form/Route: SOLUTION;INHALATION
Application: A075507 | Product #001
Applicant: ZENNOVA PHARMACEUTICALS CHENGDU CO LTD
Approved: Jan 19, 2001 | RLD: No | RS: No | Type: DISCN